FAERS Safety Report 8074348-6 (Version None)
Quarter: 2012Q1

REPORT INFORMATION
  Report Type: 
  Country: None (occurrence: None)
  Receive Date: 20120126
  Receipt Date: 20120120
  Transmission Date: 20120608
  Serious: Yes (Death, Hospitalization)
  Sender: FDA-Public Use
  Company Number: US-GLAXOSMITHKLINE-A0863039A

PATIENT
  Age: 49 Year
  Sex: Male

DRUGS (1)
  1. AVANDIA [Suspect]
     Indication: DIABETES MELLITUS
     Route: 048
     Dates: start: 20001103

REACTIONS (11)
  - ISCHAEMIC CARDIOMYOPATHY [None]
  - NAUSEA [None]
  - DYSPNOEA [None]
  - PULMONARY OEDEMA [None]
  - SWELLING [None]
  - WEIGHT INCREASED [None]
  - PRURITUS [None]
  - HEART RATE IRREGULAR [None]
  - CARDIAC FAILURE CONGESTIVE [None]
  - CHEST PAIN [None]
  - MYOCARDIAL INFARCTION [None]
